FAERS Safety Report 21295709 (Version 1)
Quarter: 2022Q3

REPORT INFORMATION
  Report Type: Spontaneous
  Country: US (occurrence: US)
  Receive Date: 20220906
  Receipt Date: 20220906
  Transmission Date: 20221027
  Serious: Yes (Hospitalization, Other)
  Sender: FDA-Public Use
  Company Number: US-SUN PHARMACEUTICAL INDUSTRIES LTD-2022R1-353657

PATIENT
  Age: 70 Year
  Sex: Male

DRUGS (3)
  1. FUROSEMIDE [Suspect]
     Active Substance: FUROSEMIDE
     Indication: Oedema
     Dosage: 20 MILLIGRAM
     Route: 065
  2. ISOSORBIDE MONONITRATE [Suspect]
     Active Substance: ISOSORBIDE MONONITRATE
     Indication: Product used for unknown indication
     Dosage: UNK
     Route: 065
  3. PRAZOSIN [Suspect]
     Active Substance: PRAZOSIN
     Indication: Product used for unknown indication
     Dosage: UNK
     Route: 065

REACTIONS (7)
  - Thrombocytopenia [Recovering/Resolving]
  - Blood creatinine increased [Recovering/Resolving]
  - Blood urea increased [Recovering/Resolving]
  - Hyperkalaemia [Recovering/Resolving]
  - Blood bicarbonate abnormal [Recovering/Resolving]
  - Glomerular filtration rate decreased [Recovering/Resolving]
  - Sinus tachycardia [Recovering/Resolving]
